FAERS Safety Report 9323024 (Version 3)
Quarter: 2014Q1

REPORT INFORMATION
  Report Type: Spontaneous
  Country: US (occurrence: US)
  Receive Date: 20130603
  Receipt Date: 20140226
  Transmission Date: 20141002
  Serious: Yes (Hospitalization)
  Sender: FDA-Public Use
  Company Number: US-B.I. PHARMACEUTICALS,INC./RIDGEFIELD-2013-BI-14869BP

PATIENT
  Sex: Male
  Weight: 108.86 kg

DRUGS (25)
  1. PRADAXA [Suspect]
     Indication: ATRIAL FIBRILLATION
     Route: 065
     Dates: start: 20110615, end: 20120210
  2. CRESTOR [Concomitant]
     Route: 065
  3. WELCHOL [Concomitant]
     Route: 065
     Dates: start: 2004
  4. AMIODARONE [Concomitant]
     Route: 065
     Dates: start: 2011
  5. EFFEXOR [Concomitant]
     Route: 065
     Dates: start: 2004
  6. TORSEMIDE [Concomitant]
     Route: 065
     Dates: start: 2004
  7. ZESTRIL [Concomitant]
     Route: 065
  8. BYSTOLIC [Concomitant]
     Route: 065
     Dates: start: 2011
  9. POTASSIUM CHLORIDE [Concomitant]
     Route: 065
     Dates: start: 2006
  10. ALLOPURINOL [Concomitant]
     Route: 065
     Dates: start: 2011, end: 2012
  11. MAGNESIUM OXIDE [Concomitant]
     Route: 065
     Dates: start: 2004
  12. PRILOSEC OTC [Concomitant]
     Route: 065
  13. XANAX [Concomitant]
     Route: 065
     Dates: start: 2011
  14. LEVOTHYROXINE [Concomitant]
     Route: 065
     Dates: start: 2011
  15. LANTUS INSULIN [Concomitant]
     Route: 065
     Dates: start: 2004
  16. ASPIRIN [Concomitant]
     Route: 065
  17. NITROSTAT [Concomitant]
     Route: 065
  18. KETOCONAZOLE [Concomitant]
     Route: 065
  19. ELOCON [Concomitant]
     Route: 065
  20. PROCTOFOAM [Concomitant]
     Route: 065
  21. ANUSOL [Concomitant]
     Route: 065
  22. METROGEL [Concomitant]
     Route: 065
  23. OMEGA-3 FATTY ACIDS [Concomitant]
     Route: 065
  24. ASTELIN [Concomitant]
     Route: 065
  25. HYDROCODONE [Concomitant]
     Route: 065

REACTIONS (2)
  - Rectal haemorrhage [Unknown]
  - Renal failure acute [Unknown]
